FAERS Safety Report 8435545-0 (Version None)
Quarter: 2012Q2

REPORT INFORMATION
  Report Type: 
  Country: None (occurrence: None)
  Receive Date: 20120614
  Receipt Date: 20120606
  Transmission Date: 20120825
  Serious: Yes (Other)
  Sender: FDA-Public Use
  Company Number: US-PFIZER INC-2012136494

PATIENT
  Sex: Male

DRUGS (2)
  1. TOPAMAX [Concomitant]
     Dosage: UNK
  2. VIAGRA [Suspect]
     Dosage: 100 MG, 1 TAB AS NEEDED
     Route: 048

REACTIONS (7)
  - BLOOD FOLLICLE STIMULATING HORMONE INCREASED [None]
  - POLLAKIURIA [None]
  - BOWEL MOVEMENT IRREGULARITY [None]
  - CONSTIPATION [None]
  - ENDOCRINE DISORDER [None]
  - HEADACHE [None]
  - BLOOD TESTOSTERONE DECREASED [None]
